FAERS Safety Report 7678592-9 (Version None)
Quarter: 2011Q3

REPORT INFORMATION
  Report Type: 
  Country: None (occurrence: None)
  Receive Date: 20110811
  Receipt Date: 20110806
  Transmission Date: 20111222
  Serious: Yes (Other)
  Sender: FDA-Public Use
  Company Number: SE-PFIZER INC-2011148892

PATIENT
  Sex: Male

DRUGS (1)
  1. FOLIC ACID [Suspect]
     Indication: ANAEMIA VITAMIN B12 DEFICIENCY
     Dosage: UNK
     Route: 048
     Dates: start: 20110101, end: 20110101

REACTIONS (2)
  - DEMENTIA [None]
  - HYPERSOMNIA [None]
